FAERS Safety Report 22206442 (Version 1)
Quarter: 2023Q2

REPORT INFORMATION
  Report Type: Spontaneous
  Country: US (occurrence: None)
  Receive Date: 20230412
  Receipt Date: 20230412
  Transmission Date: 20230722
  Serious: Yes (Other)
  Sender: FDA-Public Use
  Company Number: None

PATIENT
  Age: 35 Year
  Sex: Female
  Weight: 45 kg

DRUGS (2)
  1. SOFOSBUVIR\VELPATASVIR [Suspect]
     Active Substance: SOFOSBUVIR\VELPATASVIR
     Dosage: FREQUENCY : DAILY;?
     Route: 048
  2. SOFOSBUVIR\VELPATASVIR [Concomitant]
     Active Substance: SOFOSBUVIR\VELPATASVIR
     Dates: start: 20230320

REACTIONS (10)
  - Constipation [None]
  - Fatigue [None]
  - Influenza like illness [None]
  - Pain [None]
  - Muscle spasms [None]
  - Headache [None]
  - Memory impairment [None]
  - Sleep disorder [None]
  - Cognitive disorder [None]
  - Depression [None]

NARRATIVE: CASE EVENT DATE: 20230411
